FAERS Safety Report 8491748-0 (Version None)
Quarter: 2012Q3

REPORT INFORMATION
  Report Type: 
  Country: None (occurrence: None)
  Receive Date: 20120706
  Receipt Date: 20120626
  Transmission Date: 20120928
  Serious: Yes (Other)
  Sender: FDA-Public Use
  Company Number: US-VIROPHARMA INCORPORATED-20120531CINRY3011

PATIENT
  Sex: Female
  Weight: 69.462 kg

DRUGS (5)
  1. CINRYZE [Suspect]
     Dates: start: 20120601
  2. MULTI-VITAMINS [Concomitant]
     Indication: PREGNANCY
     Dosage: UNKNOWN
     Route: 048
     Dates: start: 20120101
  3. BERINERT [Concomitant]
     Indication: HEREDITARY ANGIOEDEMA
     Dosage: UNKNOWN
  4. ASPIRIN [Concomitant]
     Indication: PREGNANCY
     Route: 048
     Dates: start: 20120101
  5. CINRYZE [Suspect]
     Indication: HEREDITARY ANGIOEDEMA
     Dates: start: 20090301, end: 20120601

REACTIONS (8)
  - INCORRECT DRUG ADMINISTRATION RATE [None]
  - MATERNAL EXPOSURE DURING PREGNANCY [None]
  - CONDITION AGGRAVATED [None]
  - INAPPROPRIATE SCHEDULE OF DRUG ADMINISTRATION [None]
  - ABORTION SPONTANEOUS [None]
  - HEREDITARY ANGIOEDEMA [None]
  - ANGIOEDEMA [None]
  - VOMITING IN PREGNANCY [None]
